FAERS Safety Report 5624185-4 (Version None)
Quarter: 2008Q1

REPORT INFORMATION
  Report Type: 
  Country: None (occurrence: None)
  Receive Date: 20080213
  Receipt Date: 20080204
  Transmission Date: 20080703
  Serious: Yes (Hospitalization)
  Sender: FDA-Public Use
  Company Number: PHRM2007FR02888

PATIENT
  Age: 78 Year
  Sex: Male

DRUGS (2)
  1. LEPONEX [Suspect]
     Dosage: 75 MG DAILY
     Route: 048
     Dates: start: 20050101
  2. EXELON [Concomitant]
     Route: 048

REACTIONS (3)
  - ANAEMIA [None]
  - HAEMOGLOBIN DECREASED [None]
  - HOSPITALISATION [None]
